FAERS Safety Report 5246415-3 (Version None)
Quarter: 2007Q1

REPORT INFORMATION
  Report Type: 
  Country: None (occurrence: None)
  Receive Date: 20070222
  Receipt Date: 20070222
  Transmission Date: 20070707
  Serious: No
  Sender: FDA-Public Use
  Company Number: None

PATIENT
  Age: 71 Year
  Sex: Male
  Weight: 88.5 kg

DRUGS (6)
  1. ZOCOR [Suspect]
  2. PAROXETINE HCL [Concomitant]
  3. ALPRAZOLAM [Concomitant]
  4. AMLODIPINE BESYLATE [Concomitant]
  5. ENALAPRIL MALEATE [Concomitant]
  6. TRAVOPROST [Concomitant]

REACTIONS (1)
  - ASTHENIA [None]
